FAERS Safety Report 6277040-3 (Version None)
Quarter: 2009Q3

REPORT INFORMATION
  Report Type: 
  Country: None (occurrence: None)
  Receive Date: 20090722
  Receipt Date: 20081204
  Transmission Date: 20100115
  Serious: No
  Sender: FDA-Public Use
  Company Number: US-BRISTOL-MYERS SQUIBB COMPANY-14431795

PATIENT
  Age: 85 Year
  Sex: Male
  Weight: 63 kg

DRUGS (12)
  1. COUMADIN [Suspect]
     Indication: CARDIAC PACEMAKER REPLACEMENT
     Dosage: RESTARTED AS 2.5MG DAILY
     Dates: start: 20080801
  2. COUMADIN [Suspect]
     Indication: HEART RATE IRREGULAR
     Dosage: RESTARTED AS 2.5MG DAILY
     Dates: start: 20080801
  3. TYLENOL (CAPLET) [Concomitant]
  4. CAPTOPRIL [Concomitant]
  5. LORAZEPAM [Concomitant]
  6. MULTI-VITAMIN [Concomitant]
  7. RANITIDINE [Concomitant]
  8. SIMVASTATIN [Concomitant]
  9. TERAZOSIN [Concomitant]
  10. DIAZEPAM [Concomitant]
  11. PRAVASTATIN SODIUM [Concomitant]
  12. ASPIRIN [Concomitant]

REACTIONS (3)
  - GINGIVAL BLEEDING [None]
  - INTERNATIONAL NORMALISED RATIO FLUCTUATION [None]
  - PAIN [None]
